FAERS Safety Report 4518627-5 (Version None)
Quarter: 2004Q4

REPORT INFORMATION
  Report Type: 
  Country: None (occurrence: None)
  Receive Date: 20041104
  Receipt Date: 20040330
  Transmission Date: 20050328
  Serious: Yes (Hospitalization)
  Sender: FDA-Public Use
  Company Number: DSA_24165_2004

PATIENT
  Age: 53 Year

DRUGS (2)
  1. ATIVAN [Suspect]
  2. CLOZAPINE [Concomitant]

REACTIONS (2)
  - NO ADVERSE DRUG EFFECT [None]
  - OVERDOSE [None]
